FAERS Safety Report 10412958 (Version 1)
Quarter: 2014Q3

REPORT INFORMATION
  Report Type: Spontaneous
  Country: US (occurrence: None)
  Receive Date: 20140826
  Receipt Date: 20140826
  Transmission Date: 20150326
  Serious: Yes (Other)
  Sender: FDA-Public Use
  Company Number: None

PATIENT
  Age: 36 Year
  Sex: Male
  Weight: 72.58 kg

DRUGS (2)
  1. DULOXETINE DR [Suspect]
     Active Substance: DULOXETINE
     Indication: PAIN
     Dosage: 1 PILL
     Route: 048
     Dates: start: 20140801, end: 20140823
  2. DULOXETINE DR [Suspect]
     Active Substance: DULOXETINE
     Indication: DEPRESSION
     Dosage: 1 PILL
     Route: 048
     Dates: start: 20140801, end: 20140823

REACTIONS (5)
  - Depression [None]
  - Product substitution issue [None]
  - Back pain [None]
  - Drug effect decreased [None]
  - Convulsion [None]

NARRATIVE: CASE EVENT DATE: 20140823
